FAERS Safety Report 22005586 (Version 2)
Quarter: 2024Q1

REPORT INFORMATION
  Report Type: Spontaneous
  Country: RU (occurrence: RU)
  Receive Date: 20230217
  Receipt Date: 20240305
  Transmission Date: 20240410
  Serious: Yes (Other)
  Sender: FDA-Public Use
  Company Number: RU-BAYER-2023P007973

PATIENT
  Age: 58 Year
  Sex: Female

DRUGS (1)
  1. ANGELIQ [Suspect]
     Active Substance: DROSPIRENONE\ESTRADIOL
     Indication: Menopausal symptoms
     Dosage: UNK
     Route: 048
     Dates: start: 201410, end: 202210

REACTIONS (7)
  - Circulatory collapse [None]
  - Myocardial ischaemia [None]
  - Supraventricular extrasystoles [None]
  - Arteriosclerosis coronary artery [None]
  - Autonomic nervous system imbalance [None]
  - Dyslipidaemia [None]
  - Anxiety [None]

NARRATIVE: CASE EVENT DATE: 20221001
